FAERS Safety Report 7820535-9 (Version None)
Quarter: 2011Q4

REPORT INFORMATION
  Report Type: 
  Country: None (occurrence: None)
  Receive Date: 20111018
  Receipt Date: 20111004
  Transmission Date: 20120403
  Serious: Yes (Hospitalization, Other)
  Sender: FDA-Public Use
  Company Number: PHHY2011JP88428

PATIENT
  Age: 65 Year
  Sex: Female

DRUGS (3)
  1. ALENDRONIC ACID [Suspect]
  2. LETROZOLE [Suspect]
     Dosage: 1.25 MG, UNK
  3. LETROZOLE [Suspect]
     Dosage: 2.5 MG, UNK

REACTIONS (6)
  - CARBOHYDRATE ANTIGEN 15-3 INCREASED [None]
  - CARCINOEMBRYONIC ANTIGEN INCREASED [None]
  - TOOTH DISORDER [None]
  - HYPERCALCAEMIA [None]
  - MYALGIA [None]
  - ARTHRALGIA [None]
